FAERS Safety Report 4486882-6 (Version None)
Quarter: 2004Q4

REPORT INFORMATION
  Report Type: 
  Country: None (occurrence: None)
  Receive Date: 20041027
  Receipt Date: 20041020
  Transmission Date: 20050328
  Serious: Yes (Other)
  Sender: FDA-Public Use
  Company Number: PHBS2004IL13885

PATIENT
  Age: 72 Year
  Sex: Female

DRUGS (1)
  1. AREDIA [Suspect]
     Indication: MULTIPLE MYELOMA
     Dosage: 90 MG
     Route: 042
     Dates: start: 20021001, end: 20040401

REACTIONS (3)
  - OSTEOLYSIS [None]
  - OSTEOMYELITIS [None]
  - SURGERY [None]
